FAERS Safety Report 23690559 (Version 1)
Quarter: 2024Q2

REPORT INFORMATION
  Report Type: Spontaneous
  Country: US (occurrence: US)
  Receive Date: 20240401
  Receipt Date: 20240401
  Transmission Date: 20240716
  Serious: Yes (Other)
  Sender: FDA-Public Use
  Company Number: US-GILEAD-2024-0664893

PATIENT

DRUGS (6)
  1. BIKTARVY [Suspect]
     Active Substance: BICTEGRAVIR SODIUM\EMTRICITABINE\TENOFOVIR ALAFENAMIDE FUMARATE
     Indication: HIV infection
     Dosage: 1 DOSAGE FORM
     Route: 065
  2. DAVESOMERAN\ELASOMERAN [Suspect]
     Active Substance: DAVESOMERAN\ELASOMERAN
     Indication: COVID-19 prophylaxis
     Dosage: 1 DOSAGE FORM
     Route: 030
     Dates: start: 20210129, end: 20210129
  3. DAVESOMERAN\ELASOMERAN [Suspect]
     Active Substance: DAVESOMERAN\ELASOMERAN
     Dosage: 1 DOSAGE FORM
     Route: 030
     Dates: start: 20230226, end: 20230226
  4. DAVESOMERAN\ELASOMERAN [Suspect]
     Active Substance: DAVESOMERAN\ELASOMERAN
     Dosage: 1 DOSAGE FORM
     Route: 030
     Dates: start: 20210825, end: 20210825
  5. DAVESOMERAN\ELASOMERAN [Suspect]
     Active Substance: DAVESOMERAN\ELASOMERAN
     Dosage: 1 DOSAGE FORM
     Route: 030
     Dates: start: 20220711, end: 20220711
  6. DAVESOMERAN\ELASOMERAN [Suspect]
     Active Substance: DAVESOMERAN\ELASOMERAN
     Dosage: 1 DOSAGE FORM
     Route: 030
     Dates: start: 20220610, end: 20220711

REACTIONS (1)
  - Cerebrovascular accident [Recovered/Resolved]

NARRATIVE: CASE EVENT DATE: 20221001
